FAERS Safety Report 7578757-0 (Version None)
Quarter: 2011Q2

REPORT INFORMATION
  Report Type: 
  Country: None (occurrence: None)
  Receive Date: 20110628
  Receipt Date: 20110623
  Transmission Date: 20111010
  Serious: Yes (Other)
  Sender: FDA-Public Use
  Company Number: US-PFIZER INC-HQWYE445427JUL04

PATIENT
  Sex: Female
  Weight: 42 kg

DRUGS (1)
  1. PREMPRO [Suspect]
     Indication: HORMONE REPLACEMENT THERAPY
     Dosage: 0.625/ 2.5 MG
     Dates: start: 19960101, end: 20020411

REACTIONS (1)
  - BREAST CANCER FEMALE [None]
